FAERS Safety Report 18523173 (Version 6)
Quarter: 2021Q3

REPORT INFORMATION
  Report Type: Report from Study
  Country: DE (occurrence: DE)
  Receive Date: 20201119
  Receipt Date: 20210827
  Transmission Date: 20211014
  Serious: Yes (Hospitalization, Other)
  Sender: FDA-Public Use
  Company Number: DE-TAKEDA-2020TUS049171

PATIENT
  Age: 32 Year
  Sex: Female

DRUGS (14)
  1. TEDUGLUTIDE [Suspect]
     Active Substance: TEDUGLUTIDE
     Indication: SHORT-BOWEL SYNDROME
     Dosage: 2.2 MILLIGRAM (0.036 MG/KG, 7 TED DOSES PER WEEK)
     Route: 058
     Dates: start: 20200511, end: 202102
  2. TEDUGLUTIDE [Suspect]
     Active Substance: TEDUGLUTIDE
     Dosage: 3 MILLIGRAM (0.0510 MG/KG), 7 DOSES PER WEEK
     Route: 065
     Dates: start: 202102
  3. TEDUGLUTIDE [Suspect]
     Active Substance: TEDUGLUTIDE
     Dosage: 3 MILLIGRAM (0.0510 MG/KG), 7 DOSES PER WEEK
     Route: 065
     Dates: start: 202102
  4. TEDUGLUTIDE [Suspect]
     Active Substance: TEDUGLUTIDE
     Dosage: 3 MILLIGRAM (0.0510 MG/KG), 7 DOSES PER WEEK
     Route: 065
     Dates: start: 202102
  5. TEDUGLUTIDE [Suspect]
     Active Substance: TEDUGLUTIDE
     Dosage: 3 MILLIGRAM (0.0510 MG/KG), 7 DOSES PER WEEK
     Route: 065
     Dates: start: 202102
  6. TEDUGLUTIDE [Suspect]
     Active Substance: TEDUGLUTIDE
     Indication: SHORT-BOWEL SYNDROME
     Dosage: 2.2 MILLIGRAM (0.036 MG/KG, 7 TED DOSES PER WEEK)
     Route: 058
     Dates: start: 20200511, end: 202102
  7. MORPHINSULFAT ABZ [Concomitant]
     Active Substance: MORPHINE SULFATE
     Indication: PAIN
     Dosage: 10 MILLIGRAM
     Route: 030
  8. VITAMIN B12 [Concomitant]
     Active Substance: CYANOCOBALAMIN
     Indication: SHORT-BOWEL SYNDROME
     Dosage: 1 (NO UNITS), MONTHLY
     Route: 030
     Dates: start: 2017
  9. TEDUGLUTIDE [Suspect]
     Active Substance: TEDUGLUTIDE
     Indication: SHORT-BOWEL SYNDROME
     Dosage: 2.2 MILLIGRAM (0.036 MG/KG, 7 TED DOSES PER WEEK)
     Route: 058
     Dates: start: 20200511, end: 202102
  10. TEDUGLUTIDE [Suspect]
     Active Substance: TEDUGLUTIDE
     Indication: SHORT-BOWEL SYNDROME
     Dosage: 2.2 MILLIGRAM (0.036 MG/KG, 7 TED DOSES PER WEEK)
     Route: 058
     Dates: start: 20200511, end: 202102
  11. FERINJECT [Concomitant]
     Active Substance: FERRIC CARBOXYMALTOSE
     Indication: SHORT-BOWEL SYNDROME
     Dosage: 1000 MILLIGRAM
     Route: 042
     Dates: start: 2015
  12. DOLANTIN [Concomitant]
     Active Substance: MEPERIDINE
     Indication: PAIN
     Dosage: 100 MILLIGRAM
     Route: 030
  13. NOVALGIN (METAMIZOLE SODIUM) [Concomitant]
     Active Substance: METAMIZOLE SODIUM
     Indication: SHORT-BOWEL SYNDROME
     Dosage: 1 (NO UNITS)
     Route: 048
  14. DEKRISTOL [Concomitant]
     Active Substance: CHOLECALCIFEROL
     Indication: SHORT-BOWEL SYNDROME
     Dosage: 20000 INTERNATIONAL UNIT, 2/WEEK
     Route: 048

REACTIONS (6)
  - Migraine [Recovered/Resolved]
  - Gastrointestinal stoma complication [Recovered/Resolved]
  - Device related infection [Recovered/Resolved]
  - COVID-19 [Recovered/Resolved]
  - Pain [Not Recovered/Not Resolved]
  - Night sweats [Not Recovered/Not Resolved]

NARRATIVE: CASE EVENT DATE: 20201103
